FAERS Safety Report 21610550 (Version 2)
Quarter: 2022Q4

REPORT INFORMATION
  Report Type: Report from Study
  Country: US (occurrence: US)
  Receive Date: 20221117
  Receipt Date: 20221220
  Transmission Date: 20230112
  Serious: Yes (Other)
  Sender: FDA-Public Use
  Company Number: US-TAIHO-2022-002364

PATIENT
  Age: 57 Year
  Sex: Male
  Weight: 138.5 kg

DRUGS (1)
  1. LONSURF [Suspect]
     Active Substance: TIPIRACIL HYDROCHLORIDE\TRIFLURIDINE
     Indication: Rectal cancer
     Dosage: CURRENT CYCLE UNKNOWN
     Route: 048
     Dates: start: 20221031

REACTIONS (5)
  - Neutrophil count decreased [Unknown]
  - Haemorrhage [Unknown]
  - Fatigue [Unknown]
  - Nausea [Unknown]
  - Platelet count decreased [Unknown]
